FAERS Safety Report 18085481 (Version 1)
Quarter: 2020Q3

REPORT INFORMATION
  Report Type: Spontaneous
  Country: US (occurrence: US)
  Receive Date: 20200728
  Receipt Date: 20200728
  Transmission Date: 20201103
  Serious: No
  Sender: FDA-Public Use
  Company Number: None

PATIENT
  Sex: Female

DRUGS (15)
  1. CLOBETASOL [Concomitant]
     Active Substance: CLOBETASOL
  2. SUCRALFATE. [Concomitant]
     Active Substance: SUCRALFATE
  3. HUMIRA [Suspect]
     Active Substance: ADALIMUMAB
     Indication: RHEUMATOID ARTHRITIS
     Dates: start: 20190226
  4. PANTOPRAZOLE [Concomitant]
     Active Substance: PANTOPRAZOLE
  5. QUEITIAPINE [Concomitant]
  6. ATORVASTATIN [Concomitant]
     Active Substance: ATORVASTATIN
  7. CLOPIDOGREL [Concomitant]
     Active Substance: CLOPIDOGREL BISULFATE
  8. LEVOTHYROXIN [Concomitant]
     Active Substance: LEVOTHYROXINE
  9. ISOSORB [Concomitant]
  10. LAMOTRIGINE. [Concomitant]
     Active Substance: LAMOTRIGINE
  11. GABAPENTIN. [Concomitant]
     Active Substance: GABAPENTIN
  12. BUSIPONE [Concomitant]
  13. CARVEDILOL. [Concomitant]
     Active Substance: CARVEDILOL
  14. HYDROMORPHON [Concomitant]
     Active Substance: HYDROMORPHONE
  15. LISINOPRIL. [Concomitant]
     Active Substance: LISINOPRIL

REACTIONS (1)
  - Cardiac failure congestive [None]
